FAERS Safety Report 21966781 (Version 1)
Quarter: 2023Q1

REPORT INFORMATION
  Report Type: Spontaneous
  Country: US (occurrence: US)
  Receive Date: 20230208
  Receipt Date: 20230208
  Transmission Date: 20230417
  Serious: No
  Sender: FDA-Public Use
  Company Number: US-drreddys-SPO/USA/23/0159918

PATIENT
  Age: 26 Year
  Sex: Female

DRUGS (1)
  1. ZENATANE [Suspect]
     Active Substance: ISOTRETINOIN
     Indication: Acne
     Dosage: RMA ISSUE DATE: 31 AUGUST 2022 02:17:47 PM, 29 SEPTEMBER 2022 05:43:14 PM, 31 OCTOBER 2022 08:15:35

REACTIONS (1)
  - Treatment noncompliance [Unknown]
